FAERS Safety Report 5168340-9 (Version None)
Quarter: 2006Q4

REPORT INFORMATION
  Report Type: 
  Country: None (occurrence: None)
  Receive Date: 20061208
  Receipt Date: 20061106
  Transmission Date: 20070319
  Serious: Yes (Hospitalization)
  Sender: FDA-Public Use
  Company Number: GB-ROCHE-470817

PATIENT
  Age: 69 Year
  Sex: Male

DRUGS (1)
  1. XENICAL [Suspect]
     Indication: OVERWEIGHT
     Route: 065

REACTIONS (7)
  - AGEUSIA [None]
  - DEFAECATION URGENCY [None]
  - FOOD AVERSION [None]
  - NAUSEA [None]
  - PANCREATITIS [None]
  - RENAL NEOPLASM [None]
  - STEATORRHOEA [None]
